FAERS Safety Report 24833615 (Version 2)
Quarter: 2025Q4

REPORT INFORMATION
  Report Type: Other
  Country: US (occurrence: US)
  Receive Date: 20250112
  Receipt Date: 20251110
  Transmission Date: 20260117
  Serious: Yes (Other)
  Sender: DEXCEL LTD.
  Company Number: US-DEXPHARM-2025-0478

PATIENT
  Age: 50 Year
  Sex: Male

DRUGS (1)
  1. ESOMEPRAZOLE [Suspect]
     Active Substance: ESOMEPRAZOLE
     Dosage: HE WAS TAKING ESOMEPRAZOLE DAILY FOR TWENTY YEARS.

REACTIONS (1)
  - Neuroendocrine tumour [Unknown]
